FAERS Safety Report 5643473-9 (Version None)
Quarter: 2008Q1

REPORT INFORMATION
  Report Type: 
  Country: None (occurrence: None)
  Receive Date: 20080228
  Receipt Date: 20080225
  Transmission Date: 20080703
  Serious: Yes (Hospitalization)
  Sender: FDA-Public Use
  Company Number: FR-WYE-G00901708

PATIENT
  Sex: Male

DRUGS (7)
  1. EFFEXOR [Suspect]
     Indication: DEPRESSION
     Route: 048
     Dates: start: 20070101, end: 20071219
  2. EFFEXOR [Interacting]
     Dosage: 225 MG TOTAL DAILY
     Route: 048
     Dates: start: 20071220
  3. XANAX [Concomitant]
     Indication: DEPRESSION
     Route: 048
  4. BACTRIM [Concomitant]
     Indication: INFECTION PROPHYLAXIS
     Dates: start: 20070401
  5. LIORESAL [Concomitant]
     Indication: MUSCLE SPASTICITY
     Route: 048
     Dates: start: 20070401
  6. KALETRA [Interacting]
     Indication: ACQUIRED IMMUNODEFICIENCY SYNDROME
     Route: 048
     Dates: start: 20070401
  7. TRUVADA [Concomitant]
     Indication: ACQUIRED IMMUNODEFICIENCY SYNDROME
     Route: 048
     Dates: start: 20070401

REACTIONS (2)
  - DRUG INTERACTION [None]
  - GRAND MAL CONVULSION [None]
